FAERS Safety Report 16988651 (Version 1)
Quarter: 2019Q4

REPORT INFORMATION
  Report Type: Report from Study
  Country: RU (occurrence: RU)
  Receive Date: 20191104
  Receipt Date: 20191104
  Transmission Date: 20200122
  Serious: Yes (Hospitalization, Other)
  Sender: FDA-Public Use
  Company Number: RU-ASTRAZENECA-2019SF53632

PATIENT
  Age: 69 Year
  Sex: Male
  Weight: 98 kg

DRUGS (7)
  1. ATORVASTATIN [Concomitant]
     Active Substance: ATORVASTATIN
  2. BRILINTA [Suspect]
     Active Substance: TICAGRELOR
     Route: 048
     Dates: start: 201806, end: 2019
  3. ENALAPRIL [Concomitant]
     Active Substance: ENALAPRIL
  4. OMEZ [Concomitant]
     Active Substance: OMEPRAZOLE
  5. TORASEMIDE [Concomitant]
     Active Substance: TORSEMIDE
  6. VEROSPIRON [Concomitant]
     Active Substance: SPIRONOLACTONE
  7. SYMBICORT [Suspect]
     Active Substance: BUDESONIDE\FORMOTEROL FUMARATE DIHYDRATE
     Indication: CHRONIC OBSTRUCTIVE PULMONARY DISEASE
     Dosage: 160+4.5 MCG/DOSE 2 INHALATIONS, TWO TIMES A DAY
     Route: 055
     Dates: start: 201806

REACTIONS (3)
  - Dyspnoea [Recovering/Resolving]
  - Intentional product misuse [Recovered/Resolved]
  - Vascular occlusion [Unknown]

NARRATIVE: CASE EVENT DATE: 201806
